FAERS Safety Report 22772351 (Version 6)
Quarter: 2024Q4

REPORT INFORMATION
  Report Type: Report from Study
  Country: US (occurrence: US)
  Receive Date: 20230801
  Receipt Date: 20241007
  Transmission Date: 20250114
  Serious: Yes (Other)
  Sender: NOVARTIS
  Company Number: US-002147023-NVSC2023US167150

PATIENT
  Age: 86 Year
  Sex: Female

DRUGS (3)
  1. LEQVIO [Suspect]
     Active Substance: INCLISIRAN SODIUM
     Indication: Product used for unknown indication
     Dosage: UNK, 1ST INJECTION
     Route: 058
     Dates: start: 20230628, end: 20230927
  2. LEQVIO [Suspect]
     Active Substance: INCLISIRAN SODIUM
     Dosage: EVERY SIX MONTH
     Route: 065
  3. LEQVIO [Suspect]
     Active Substance: INCLISIRAN SODIUM
     Dosage: UNK, SECOND INJECTION
     Route: 058
     Dates: start: 20230927

REACTIONS (13)
  - Lower respiratory tract infection [Unknown]
  - Diabetes mellitus [Unknown]
  - Neuropathy peripheral [Unknown]
  - Asthenia [Unknown]
  - Heart rate irregular [Unknown]
  - Tremor [Unknown]
  - Malaise [Unknown]
  - Feeling jittery [Unknown]
  - Nervousness [Unknown]
  - Nasopharyngitis [Unknown]
  - Cough [Unknown]
  - Dizziness [Unknown]
  - Urinary tract infection [Unknown]

NARRATIVE: CASE EVENT DATE: 20231012
